FAERS Safety Report 25377863 (Version 4)
Quarter: 2025Q4

REPORT INFORMATION
  Report Type: Spontaneous
  Country: JP (occurrence: JP)
  Receive Date: 20250530
  Receipt Date: 20251211
  Transmission Date: 20260118
  Serious: Yes (Hospitalization, Other)
  Sender: JOHNSON AND JOHNSON
  Company Number: JP-MTPC-MTPC2025-0009690

PATIENT
  Age: 11 Year
  Sex: Male

DRUGS (16)
  1. REMICADE [Suspect]
     Active Substance: INFLIXIMAB
     Indication: Congenital ectodermal dysplasia
     Dosage: 100 MILLIGRAM, QD
     Route: 041
     Dates: start: 20081030
  2. REMICADE [Suspect]
     Active Substance: INFLIXIMAB
     Indication: Crohn^s disease
     Dosage: 150 MILLIGRAM, QD
     Route: 041
     Dates: start: 20101216
  3. REMICADE [Suspect]
     Active Substance: INFLIXIMAB
     Dosage: 200 MILLIGRAM, QD
     Route: 041
     Dates: start: 20110331
  4. REMICADE [Suspect]
     Active Substance: INFLIXIMAB
     Dosage: 200 MILLIGRAM, QD
     Route: 041
  5. REMICADE [Suspect]
     Active Substance: INFLIXIMAB
     Dosage: 200 MILLIGRAM, QD
     Route: 041
  6. REMICADE [Suspect]
     Active Substance: INFLIXIMAB
     Dosage: 200 MILLIGRAM, QD
     Route: 041
  7. REMICADE [Suspect]
     Active Substance: INFLIXIMAB
     Dosage: 200 MILLIGRAM, QD
     Route: 041
  8. REMICADE [Suspect]
     Active Substance: INFLIXIMAB
     Dosage: 3.9 MILLIGRAM/KILOGRAM, QD
     Route: 041
     Dates: start: 20180403, end: 20180403
  9. REMICADE [Suspect]
     Active Substance: INFLIXIMAB
     Dosage: 200 MILLIGRAM, QD
     Route: 041
     Dates: start: 20180831
  10. REMICADE [Suspect]
     Active Substance: INFLIXIMAB
     Dosage: 3.8 MILLIGRAM/KILOGRAM, QD
     Route: 041
     Dates: start: 20221228, end: 20221228
  11. REMICADE [Suspect]
     Active Substance: INFLIXIMAB
     Dosage: 200 MILLIGRAM, QD
     Route: 041
     Dates: start: 20230418
  12. PREDONINE [Suspect]
     Active Substance: PREDNISOLONE
     Indication: Organising pneumonia
     Dosage: 5 MILLIGRAM, QD
     Route: 048
     Dates: start: 20180502, end: 20180523
  13. PREDNISOLONE [Suspect]
     Active Substance: PREDNISOLONE
     Indication: Organising pneumonia
     Dosage: 3 MILLIGRAM, QD
     Route: 048
     Dates: start: 20180502, end: 20180523
  14. PENTASA [Suspect]
     Active Substance: MESALAMINE
     Indication: Product used for unknown indication
  15. BIO-THREE [Concomitant]
     Active Substance: HERBALS
     Indication: Abdominal pain
     Dosage: 3 DOSAGE FORM, QD
     Route: 048
  16. SULFAMETHOXAZOLE\TRIMETHOPRIM [Concomitant]
     Active Substance: SULFAMETHOXAZOLE\TRIMETHOPRIM
     Indication: Pneumocystis jirovecii pneumonia
     Dosage: 1 DOSAGE FORM, QD
     Route: 048

REACTIONS (4)
  - Organising pneumonia [Recovering/Resolving]
  - Organising pneumonia [Recovering/Resolving]
  - Atypical mycobacterial infection [Recovering/Resolving]
  - Disseminated mycobacterium avium complex infection [Recovering/Resolving]

NARRATIVE: CASE EVENT DATE: 20140223
